FAERS Safety Report 12641601 (Version 1)
Quarter: 2016Q3

REPORT INFORMATION
  Report Type: Report from Study
  Country: US (occurrence: US)
  Receive Date: 20160810
  Receipt Date: 20160810
  Transmission Date: 20161109
  Serious: Yes (Other)
  Sender: FDA-Public Use
  Company Number: US-ABBVIE-16P-163-1691351-00

PATIENT
  Age: 18 Year
  Sex: Male

DRUGS (1)
  1. VIEKIRA PAK [Suspect]
     Active Substance: DASABUVIR\OMBITASVIR\PARITAPREVIR\RITONAVIR
     Indication: HEPATITIS C
     Dosage: PER MANUFACTURER PACKAGE DIRECTIONS
     Route: 048
     Dates: start: 201606, end: 20160719

REACTIONS (7)
  - Haemolytic anaemia [Unknown]
  - Chromaturia [Unknown]
  - Decreased appetite [Unknown]
  - Pruritus [Unknown]
  - Nausea [Unknown]
  - Blood bilirubin increased [Unknown]
  - Fatigue [Unknown]

NARRATIVE: CASE EVENT DATE: 201606
